FAERS Safety Report 4563833-7 (Version None)
Quarter: 2005Q1

REPORT INFORMATION
  Report Type: 
  Country: None (occurrence: None)
  Receive Date: 20050125
  Receipt Date: 20050114
  Transmission Date: 20050727
  Serious: Yes (Death, Hospitalization, Other)
  Sender: FDA-Public Use
  Company Number: DE-2005-000367

PATIENT
  Age: 73 Year
  Sex: Female
  Weight: 50.0318 kg

DRUGS (7)
  1. FLUDARA [Suspect]
     Dosage: 25MG/M2 25MG/M2 CYCLES
     Dates: start: 20040721, end: 20040723
  2. FLUDARA [Suspect]
     Dosage: 25MG/M2 25MG/M2 CYCLES
     Dates: start: 20040818, end: 20040820
  3. FLUDARA [Suspect]
     Dosage: 25MG/M2 25MG/M2 CYCLES
     Dates: start: 20040908, end: 20040910
  4. FLUDARA [Suspect]
     Dosage: 25MG/M2 25MG/M2 CYCLES
     Dates: start: 20040929, end: 20041001
  5. FLUDARA [Suspect]
     Dosage: 25MG/M2 25MG/M2 CYCLES
     Dates: start: 20041123, end: 20041125
  6. INFECTION PROPHYLAXIS [Concomitant]
  7. TURIMYCIN (R) 300 (CLINDAMYCIN) [Concomitant]

REACTIONS (10)
  - ALANINE AMINOTRANSFERASE INCREASED [None]
  - ANAEMIA OF CHRONIC DISEASE [None]
  - ASPARTATE AMINOTRANSFERASE INCREASED [None]
  - BRONCHOPNEUMONIA [None]
  - CIRCULATORY COLLAPSE [None]
  - CONDITION AGGRAVATED [None]
  - FATIGUE [None]
  - INFECTION [None]
  - PLATELET COUNT DECREASED [None]
  - PNEUMONIA [None]
